FAERS Safety Report 5084607-7 (Version None)
Quarter: 2006Q3

REPORT INFORMATION
  Report Type: 
  Country: None (occurrence: None)
  Receive Date: 20060821
  Receipt Date: 20060426
  Transmission Date: 20061208
  Serious: Yes (Hospitalization, Other)
  Sender: FDA-Public Use
  Company Number: PHBS2006FR06255

PATIENT
  Age: 63 Year
  Sex: Male

DRUGS (10)
  1. CYCLOSPORINE [Suspect]
     Indication: LIVER TRANSPLANT
     Route: 065
  2. STEROIDS NOS [Concomitant]
  3. VERAPAMIL (NGX) [Suspect]
     Indication: HYPERTENSION
     Dosage: 360 MG, QD
     Route: 065
  4. CALCIUM CARBONATE [Concomitant]
  5. TRIMETAZIDINE [Concomitant]
  6. OMEPRAZOLE [Concomitant]
  7. FERROUS SULFATE TAB [Concomitant]
  8. RILMENIDINE [Concomitant]
  9. EPOGEN [Concomitant]
     Route: 042
  10. SODIUM POLYSTYRENE SULFONATE [Concomitant]

REACTIONS (11)
  - ATRIOVENTRICULAR BLOCK [None]
  - BLOOD BICARBONATE ABNORMAL [None]
  - BUNDLE BRANCH BLOCK RIGHT [None]
  - HAEMODIALYSIS [None]
  - HYPERKALAEMIA [None]
  - HYPERTENSION [None]
  - LOSS OF CONSCIOUSNESS [None]
  - NEPHROPATHY TOXIC [None]
  - PROTEIN TOTAL DECREASED [None]
  - SINUS RHYTHM [None]
  - VENTRICULAR HYPERTROPHY [None]
